FAERS Safety Report 8867982 (Version 1)
Quarter: 2012Q4

REPORT INFORMATION
  Report Type: 
  Country: US (occurrence: US)
  Receive Date: 20121025
  Receipt Date: 20121025
  Transmission Date: 20130627
  Serious: No
  Sender: FDA-Public Use
  Company Number: US-AMGEN-USASP2012018849

PATIENT
  Sex: Male

DRUGS (8)
  1. ENBREL [Suspect]
     Indication: PRODUCT USED FOR UNKNOWN INDICATION
     Dosage: 50 mg, qwk
     Route: 058
  2. LYRICA [Concomitant]
     Dosage: 200 mg, UNK
  3. WARFARIN [Concomitant]
     Dosage: 2 mg, UNK
  4. SPIRIVA HANDIHALER [Concomitant]
     Dosage: UNK
  5. ADVAIR HFA [Concomitant]
     Dosage: UNK
  6. NASONEX [Concomitant]
     Dosage: 50 mug, UNK
  7. NOVOLOG [Concomitant]
     Dosage: 100 ml, UNK
  8. LANTUS [Concomitant]
     Dosage: 100 ml, UNK

REACTIONS (4)
  - Exercise lack of [Unknown]
  - Weight increased [Unknown]
  - Pain [Unknown]
  - Injection site pruritus [Unknown]
